FAERS Safety Report 21085277 (Version 2)
Quarter: 2023Q4

REPORT INFORMATION
  Report Type: Spontaneous
  Country: US (occurrence: US)
  Receive Date: 20220714
  Receipt Date: 20231110
  Transmission Date: 20240110
  Serious: Yes (Other)
  Sender: FDA-Public Use
  Company Number: US-JNJFOC-20220718278

PATIENT
  Age: 65 Year
  Sex: Female

DRUGS (3)
  1. ELMIRON [Suspect]
     Active Substance: PENTOSAN POLYSULFATE SODIUM
     Indication: Cystitis interstitial
     Dosage: WITH VARYING DOSE OF 100 MG THRICE A DAY, AND AT 400 OR 600 MG/DAY
     Route: 048
     Dates: start: 19960925
  2. ELMIRON [Suspect]
     Active Substance: PENTOSAN POLYSULFATE SODIUM
     Dosage: ON VARYING DOSE AND FREQUENCY OF 100 MG THRICE A DAY AND 200 MG TWICE A DAY
     Route: 048
     Dates: start: 2003, end: 2013
  3. ELMIRON [Suspect]
     Active Substance: PENTOSAN POLYSULFATE SODIUM
     Route: 048
     Dates: end: 2015

REACTIONS (3)
  - Maculopathy [Unknown]
  - Age-related macular degeneration [Unknown]
  - Off label use [Unknown]

NARRATIVE: CASE EVENT DATE: 20150428
